FAERS Safety Report 9238877 (Version 1)
Quarter: 2013Q2

REPORT INFORMATION
  Report Type: Other
  Country: ES (occurrence: ES)
  Receive Date: 20130418
  Receipt Date: 20130418
  Transmission Date: 20140414
  Serious: Yes (Other)
  Sender: FDA-Public Use
  Company Number: ES-SHIRE-SPV1-2011-01511

PATIENT
  Sex: 0

DRUGS (9)
  1. XAGRID [Suspect]
     Indication: ESSENTIAL THROMBOCYTHAEMIA
     Dosage: 0.5 MG, OTHER, (2 CAPSULES ON WEDNESDAY AND SATURDAY)
     Route: 048
     Dates: start: 20100119
  2. XAGRID [Suspect]
     Dosage: 0.5 MG  (ONE CAPSULE MONDAY, TUESDAY, THURSDAY, AND SUNDAY)
     Route: 048
     Dates: start: 20100119
  3. XAGRID [Suspect]
     Dosage: 0.5 MG, 1X/DAY:QD (2 CAPSULES  2 DAYS/WEEK AND 1 CAPSULE 5 DAYS/WEEK)
     Dates: start: 2011
  4. XAGRID [Suspect]
     Dosage: 0.5 MG, 1X/DAY:QD (2 CAPSULES ON WED AND SAT AND 1 CAPSULE ON MON, TUES, THURS, FRI AND SAT)
     Route: 048
     Dates: start: 2013
  5. LANSOPRAZOL [Concomitant]
     Indication: GASTRITIS PROPHYLAXIS
     Dosage: 1 DF, 1X/DAY:QD
     Route: 065
  6. DUPHALAC                           /00163401/ [Concomitant]
     Indication: CONSTIPATION
     Dosage: UNK, AS REQ^D
     Route: 065
  7. ALMAX [Concomitant]
     Indication: BARRETT^S OESOPHAGUS
     Dosage: 1 DF, 1X/DAY:QD
     Route: 065
  8. SPIRIVA [Concomitant]
     Indication: BRONCHITIS CHRONIC
     Dosage: 1 DF, OTHER (EVERY 24 HOURS)
     Route: 065
  9. PLUSVENT [Concomitant]
     Indication: BRONCHITIS CHRONIC
     Dosage: 2 DF, 2X/DAY:BID (EVERY 12 HOURS)
     Route: 065

REACTIONS (6)
  - Barrett^s oesophagus [Not Recovered/Not Resolved]
  - Anaemia [Not Recovered/Not Resolved]
  - White blood cell count decreased [Unknown]
  - Blood uric acid increased [Unknown]
  - Blood triglycerides increased [Unknown]
  - Platelet count increased [Not Recovered/Not Resolved]
